FAERS Safety Report 9796304 (Version 2)
Quarter: 2014Q1

REPORT INFORMATION
  Report Type: Spontaneous
  Country: AT (occurrence: AT)
  Receive Date: 20140103
  Receipt Date: 20140103
  Transmission Date: 20141002
  Serious: Yes (Other)
  Sender: FDA-Public Use
  Company Number: PHHY2013AT138936

PATIENT
  Sex: Male

DRUGS (2)
  1. VOLTAREN RETARD [Suspect]
     Indication: MUSCULOSKELETAL PAIN
     Dosage: 100 MG, EVERY 3-5 DAYS
     Route: 048
  2. NOMEXOR [Concomitant]
     Dosage: UNK UKN, UNK

REACTIONS (1)
  - Blindness transient [Unknown]
